FAERS Safety Report 6425272-3 (Version None)
Quarter: 2009Q4

REPORT INFORMATION
  Report Type: 
  Country: None (occurrence: None)
  Receive Date: 20091102
  Receipt Date: 20091102
  Transmission Date: 20100525
  Serious: Yes (Hospitalization)
  Sender: FDA-Public Use
  Company Number: None

PATIENT
  Age: 75 Year
  Sex: Male
  Weight: 77.7 kg

DRUGS (2)
  1. THALIDOMIDE [Suspect]
     Indication: PROSTATE CANCER
     Dosage: 100 MG Q PM PO
     Route: 048
     Dates: start: 20091006, end: 20091026
  2. DOXIL [Suspect]
     Indication: PROSTATE CANCER
     Dosage: 60 MG/ M2 Q 28 DAYS IV
     Route: 042
     Dates: start: 20091006, end: 20091006

REACTIONS (2)
  - BODY TEMPERATURE INCREASED [None]
  - CHILLS [None]
